FAERS Safety Report 18803548 (Version 1)
Quarter: 2021Q1

REPORT INFORMATION
  Report Type: Spontaneous
  Country: US (occurrence: US)
  Receive Date: 20210128
  Receipt Date: 20210128
  Transmission Date: 20210419
  Serious: Yes (Death, Hospitalization, Other)
  Sender: FDA-Public Use
  Company Number: US-TEVA-2021-US-1872069

PATIENT
  Age: 7 Month
  Sex: Male

DRUGS (3)
  1. VIGABATRIN. [Suspect]
     Active Substance: VIGABATRIN
     Indication: INFANTILE SPASMS
     Dosage: 150 MG/KG DAILY;
     Route: 065
  2. ACTH [Suspect]
     Active Substance: CORTICOTROPIN
     Dosage: 150 U/M2 BODY SURFACE AREA
     Route: 065
  3. ACTH [Suspect]
     Active Substance: CORTICOTROPIN
     Indication: INFANTILE SPASMS
     Dosage: 56 IU (INTERNATIONAL UNIT) DAILY; 156 U/M2 BODY SURFACE AREA PER DAY (56 U/DAY)
     Route: 065

REACTIONS (13)
  - Encephalopathy [Fatal]
  - Autonomic nervous system imbalance [Unknown]
  - Hypertension [Unknown]
  - Toxicity to various agents [Unknown]
  - Respiratory distress [Fatal]
  - Somnolence [Unknown]
  - Dyskinesia [Unknown]
  - Respiratory failure [Unknown]
  - Treatment failure [Unknown]
  - Tachypnoea [Unknown]
  - Chorea [Unknown]
  - Bradycardia [Unknown]
  - Magnetic resonance imaging brain abnormal [Unknown]
